FAERS Safety Report 5859367-X (Version None)
Quarter: 2008Q3

REPORT INFORMATION
  Report Type: 
  Country: None (occurrence: None)
  Receive Date: 20080826
  Receipt Date: 20080826
  Transmission Date: 20090109
  Serious: Yes (Hospitalization)
  Sender: FDA-Public Use
  Company Number: None

PATIENT
  Sex: Female
  Weight: 109 kg

DRUGS (4)
  1. BEVACIZUMAB (RHUMAB VEGF) [Suspect]
     Dosage: 549 MG
     Dates: end: 20070226
  2. LEUCOVORIN CALCIUM [Suspect]
     Dosage: 936 MG
     Dates: end: 20070226
  3. ELOXATIN [Suspect]
     Dosage: 200 MG
     Dates: end: 20070226
  4. FLUOROURACIL [Suspect]
     Dosage: 6552 MG
     Dates: end: 20070226

REACTIONS (2)
  - LARGE INTESTINE PERFORATION [None]
  - TUMOUR LOCAL INVASION [None]
